FAERS Safety Report 16052445 (Version 1)
Quarter: 2019Q1

REPORT INFORMATION
  Report Type: Spontaneous
  Country: IT (occurrence: IT)
  Receive Date: 20190308
  Receipt Date: 20190308
  Transmission Date: 20190418
  Serious: Yes (Other)
  Sender: FDA-Public Use
  Company Number: IT-PFIZER INC-2019104098

PATIENT
  Age: 51 Year
  Sex: Male

DRUGS (3)
  1. ACETYLSALICYLIC ACID [Concomitant]
     Active Substance: ASPIRIN
     Dosage: UNK
  2. INSULIN [Concomitant]
     Active Substance: INSULIN NOS
     Dosage: UNK
  3. TRIATEC (RAMIPRIL) [Suspect]
     Active Substance: RAMIPRIL
     Indication: HYPERTENSION
     Dosage: 1 DF, DAILY
     Route: 048

REACTIONS (5)
  - Dyspnoea [Recovering/Resolving]
  - Drug ineffective [Unknown]
  - Blood pressure increased [Recovering/Resolving]
  - Chest pain [Recovering/Resolving]
  - Headache [Recovering/Resolving]

NARRATIVE: CASE EVENT DATE: 20190127
